FAERS Safety Report 7101430-X (Version None)
Quarter: 2010Q4

REPORT INFORMATION
  Report Type: 
  Country: None (occurrence: None)
  Receive Date: 20101115
  Receipt Date: 20101108
  Transmission Date: 20110411
  Serious: No
  Sender: FDA-Public Use
  Company Number: US-PFIZER INC-2010143093

PATIENT
  Sex: Female

DRUGS (2)
  1. LYRICA [Suspect]
     Indication: NERVE COMPRESSION
     Dosage: 100 MG, 2X/DAY
     Route: 048
     Dates: start: 20101001
  2. LYRICA [Suspect]
     Indication: PAIN

REACTIONS (1)
  - SOMNOLENCE [None]
